FAERS Safety Report 15539159 (Version 2)
Quarter: 2019Q4

REPORT INFORMATION
  Report Type: Spontaneous
  Country: HU (occurrence: HU)
  Receive Date: 20181022
  Receipt Date: 20191216
  Transmission Date: 20200122
  Serious: Yes (Other)
  Sender: FDA-Public Use
  Company Number: HU-ALLERGAN-1850065US

PATIENT
  Sex: Female

DRUGS (7)
  1. COMBIGAN [Suspect]
     Active Substance: BRIMONIDINE TARTRATE\TIMOLOL MALEATE
     Indication: GLAUCOMA
     Dosage: 1 DF, UNK
     Route: 047
     Dates: start: 201607, end: 201709
  2. ROSUVASTATIN. [Concomitant]
     Active Substance: ROSUVASTATIN
     Indication: PRODUCT USED FOR UNKNOWN INDICATION
     Dosage: 10 MG, QHS
     Route: 065
  3. ACETYLSALICYLIC ACID [Concomitant]
     Active Substance: ASPIRIN
     Dosage: 100 MG, QAM
     Route: 065
  4. LERCATON [Interacting]
     Active Substance: LERCANIDIPINE HYDROCHLORIDE
     Indication: HYPERTENSION
     Dosage: 5 MG, UNK
     Route: 048
  5. VALSARTAN. [Concomitant]
     Active Substance: VALSARTAN
     Dosage: 80 MG, QHS
     Route: 065
  6. COMBIGAN [Interacting]
     Active Substance: BRIMONIDINE TARTRATE\TIMOLOL MALEATE
     Dosage: 1 DF, UNK
     Route: 047
     Dates: start: 201508, end: 201607
  7. VITAMIN D3 [Concomitant]
     Active Substance: CHOLECALCIFEROL
     Indication: PRODUCT USED FOR UNKNOWN INDICATION
     Dosage: 1000 IU, QAM
     Route: 065

REACTIONS (3)
  - Blood pressure decreased [Recovered/Resolved]
  - Drug interaction [Recovered/Resolved]
  - Syncope [Recovered/Resolved]

NARRATIVE: CASE EVENT DATE: 201509
